FAERS Safety Report 17678292 (Version 2)
Quarter: 2020Q2

REPORT INFORMATION
  Report Type: Spontaneous
  Country: US (occurrence: US)
  Receive Date: 20200417
  Receipt Date: 20200428
  Transmission Date: 20200714
  Serious: No
  Sender: FDA-Public Use
  Company Number: US-GLAXOSMITHKLINE-US2020AMR064529

PATIENT
  Sex: Female

DRUGS (1)
  1. ZEJULA [Suspect]
     Active Substance: NIRAPARIB
     Indication: OVARIAN CANCER
     Dosage: 300 MG, QD (WITH FOOD)
     Dates: start: 20200323

REACTIONS (9)
  - Abdominal pain upper [Unknown]
  - Nausea [Unknown]
  - Blood pressure increased [Unknown]
  - Decreased appetite [Unknown]
  - Asthenia [Unknown]
  - Retching [Unknown]
  - Feeling abnormal [Unknown]
  - Platelet count decreased [Not Recovered/Not Resolved]
  - Weight decreased [Unknown]
